FAERS Safety Report 18215530 (Version 1)
Quarter: 2020Q3

REPORT INFORMATION
  Report Type: Spontaneous
  Country: US (occurrence: US)
  Receive Date: 20200831
  Receipt Date: 20200831
  Transmission Date: 20201103
  Serious: Yes (Other)
  Sender: FDA-Public Use
  Company Number: US-SA-2020SA227689

PATIENT

DRUGS (14)
  1. HEPARIN [Suspect]
     Active Substance: HEPARIN SODIUM
     Dosage: UNK DF
     Route: 065
  2. METHADONE [Suspect]
     Active Substance: METHADONE HYDROCHLORIDE
     Dosage: 5 MG, BID
     Route: 065
     Dates: start: 20060712, end: 20060717
  3. PHENERGAN [Suspect]
     Active Substance: PROMETHAZINE HYDROCHLORIDE
     Indication: NAUSEA
     Dosage: 25 MG, Q6H
     Route: 042
     Dates: start: 20060704
  4. LOVENOX [Suspect]
     Active Substance: ENOXAPARIN SODIUM
     Dosage: 70 MG, QD
     Route: 058
     Dates: start: 20060619
  5. ACETYLSALICYLIC ACID [Suspect]
     Active Substance: ASPIRIN
     Dosage: 81 MG, QD
     Route: 065
  6. DOCUSATE SODIUM. [Suspect]
     Active Substance: DOCUSATE SODIUM
     Dosage: 100 MG, QD
     Route: 065
     Dates: start: 20060617
  7. PHENERGAN [Suspect]
     Active Substance: PROMETHAZINE HYDROCHLORIDE
     Indication: VOMITING
  8. PIPERACILLIN SODIUM/TAZOBACTAM SODIUM [Suspect]
     Active Substance: PIPERACILLIN SODIUM\TAZOBACTAM SODIUM
     Dosage: 3.375 MG, Q6H
     Route: 042
  9. PREVACID [Suspect]
     Active Substance: LANSOPRAZOLE
     Dosage: 30 MG, QD
     Route: 042
     Dates: start: 20060630
  10. HYDROMORPHONE [Suspect]
     Active Substance: HYDROMORPHONE
     Dosage: 1 MG, Q2H
     Route: 042
     Dates: start: 20060712, end: 20060717
  11. ASCORBIC ACID. [Suspect]
     Active Substance: ASCORBIC ACID
     Dosage: 500 MG, BID
     Route: 065
     Dates: start: 20060715
  12. SODIUM CHLORIDE. [Suspect]
     Active Substance: SODIUM CHLORIDE
     Dosage: 10 ML, Q4H
     Route: 042
     Dates: start: 20060607
  13. ONDANSETRON [Suspect]
     Active Substance: ONDANSETRON
     Indication: NAUSEA
     Dosage: 4 MG, Q6H
     Route: 042
     Dates: start: 20060704
  14. ONDANSETRON [Suspect]
     Active Substance: ONDANSETRON
     Indication: VOMITING

REACTIONS (1)
  - Pancreatic carcinoma [Unknown]
